FAERS Safety Report 16891914 (Version 1)
Quarter: 2019Q4

REPORT INFORMATION
  Report Type: Spontaneous
  Country: MX (occurrence: MX)
  Receive Date: 20191007
  Receipt Date: 20191007
  Transmission Date: 20200122
  Serious: Yes (Life-Threatening, Hospitalization)
  Sender: FDA-Public Use
  Company Number: MX-JNJFOC-20191004125

PATIENT
  Age: 54 Year
  Sex: Male
  Weight: 100 kg

DRUGS (1)
  1. RIVAROXABAN [Suspect]
     Active Substance: RIVAROXABAN
     Indication: PRODUCT USED FOR UNKNOWN INDICATION
     Dosage: 1 DF, QD
     Route: 048
     Dates: start: 2015

REACTIONS (1)
  - Urethritis [Unknown]

NARRATIVE: CASE EVENT DATE: 201902
